FAERS Safety Report 8273687-3 (Version None)
Quarter: 2012Q2

REPORT INFORMATION
  Report Type: 
  Country: None (occurrence: None)
  Receive Date: 20120411
  Receipt Date: 20120328
  Transmission Date: 20120825
  Serious: Yes (Other)
  Sender: FDA-Public Use
  Company Number: BD-ASTELLAS-2012US001506

PATIENT
  Age: 14 Year
  Sex: Female
  Weight: 45 kg

DRUGS (2)
  1. ALBENDAZOLE [Concomitant]
     Indication: PRODUCT USED FOR UNKNOWN INDICATION
     Dosage: UNK
     Route: 065
     Dates: start: 20110213, end: 20110213
  2. AMBISOME [Suspect]
     Indication: VISCERAL LEISHMANIASIS
     Dosage: 225 MG, UNKNOWN/D
     Route: 042
     Dates: start: 20110213

REACTIONS (1)
  - ASTHENIA [None]
